FAERS Safety Report 12347011 (Version 2)
Quarter: 2016Q3

REPORT INFORMATION
  Report Type: Spontaneous
  Country: US (occurrence: US)
  Receive Date: 20160509
  Receipt Date: 20160720
  Transmission Date: 20161109
  Serious: Yes (Hospitalization, Other)
  Sender: FDA-Public Use
  Company Number: US-MYLANLABS-2016M1018954

PATIENT

DRUGS (4)
  1. KETAMINE [Suspect]
     Active Substance: KETAMINE
     Dosage: 10-12 TIMES A DAY
     Route: 045
  2. CLONAZEPAM. [Concomitant]
     Active Substance: CLONAZEPAM
     Route: 065
  3. KETAMINE [Suspect]
     Active Substance: KETAMINE
     Indication: MAJOR DEPRESSION
     Dosage: 0.5-1ML; EVERY 4 HOURS AS NEEDED
     Route: 045
  4. ESZOPICLONE. [Suspect]
     Active Substance: ESZOPICLONE
     Indication: PRODUCT USED FOR UNKNOWN INDICATION
     Route: 065

REACTIONS (6)
  - Intentional product misuse [Unknown]
  - Suicide attempt [Unknown]
  - Off label use [Unknown]
  - Intentional overdose [Unknown]
  - Drug dependence [Unknown]
  - Dissociative disorder [Recovered/Resolved]
